FAERS Safety Report 5848159-3 (Version None)
Quarter: 2008Q3

REPORT INFORMATION
  Report Type: 
  Country: None (occurrence: None)
  Receive Date: 20080818
  Receipt Date: 20080814
  Transmission Date: 20090109
  Serious: Yes (Hospitalization)
  Sender: FDA-Public Use
  Company Number: A0742906A

PATIENT
  Age: 50 Year
  Sex: Female
  Weight: 78.5 kg

DRUGS (2)
  1. LAPATINIB [Suspect]
     Indication: BREAST CANCER
     Dosage: 1500MG PER DAY
     Route: 048
     Dates: start: 20080220
  2. SODIUM CHLORIDE 0.9% [Concomitant]
     Dosage: .9PCT CONTINUOUS
     Route: 042
     Dates: start: 20080806, end: 20080808

REACTIONS (1)
  - ABDOMINAL PAIN [None]
